FAERS Safety Report 24382402 (Version 2)
Quarter: 2024Q4

REPORT INFORMATION
  Report Type: Report from Study
  Country: US (occurrence: US)
  Receive Date: 20241001
  Receipt Date: 20241007
  Transmission Date: 20250114
  Serious: Yes (Hospitalization)
  Sender: ABBVIE
  Company Number: US-ABBVIE-5942598

PATIENT
  Sex: Female

DRUGS (1)
  1. HUMIRA [Suspect]
     Active Substance: ADALIMUMAB
     Indication: Product used for unknown indication
     Route: 058

REACTIONS (5)
  - Pneumonia [Unknown]
  - Liquid product physical issue [Not Recovered/Not Resolved]
  - COVID-19 [Unknown]
  - Product packaging quantity issue [Not Recovered/Not Resolved]
  - Vocal cord disorder [Unknown]
